FAERS Safety Report 9970617 (Version 1)
Quarter: 2014Q1

REPORT INFORMATION
  Report Type: Report from Study
  Country: US (occurrence: US)
  Receive Date: 20140306
  Receipt Date: 20140306
  Transmission Date: 20141002
  Serious: No
  Sender: FDA-Public Use
  Company Number: US-ABBVIE-13P-163-1149662-00

PATIENT
  Age: 57 Year
  Sex: Male

DRUGS (5)
  1. HUMIRA [Suspect]
     Indication: PSORIATIC ARTHROPATHY
     Dosage: DOSE DAY 1
     Dates: start: 20130908, end: 20130908
  2. HUMIRA [Suspect]
     Dosage: DOSE DAY 8
  3. HUMIRA [Suspect]
  4. TRAMADOL [Concomitant]
     Indication: ARTHRALGIA
  5. IBUPROFEN [Concomitant]
     Indication: ARTHRALGIA
     Dosage: DAILY

REACTIONS (1)
  - Drug ineffective [Not Recovered/Not Resolved]
